FAERS Safety Report 8992939 (Version 1)
Quarter: 2013Q1

REPORT INFORMATION
  Report Type: Spontaneous
  Country: NO (occurrence: NO)
  Receive Date: 20130102
  Receipt Date: 20130102
  Transmission Date: 20140127
  Serious: Yes (Other)
  Sender: FDA-Public Use
  Company Number: NO-JNJFOC-20121211904

PATIENT
  Age: 58 Year
  Sex: Female
  Weight: 85 kg

DRUGS (6)
  1. REMICADE [Suspect]
     Indication: RHEUMATOID ARTHRITIS
     Route: 042
     Dates: start: 20121219
  2. REMICADE [Suspect]
     Indication: RHEUMATOID ARTHRITIS
     Dosage: 7-8 WEEKS
     Route: 042
     Dates: start: 2002
  3. IMOVANE [Concomitant]
     Dosage: AS NECESSARY
     Route: 065
  4. PANODIL [Concomitant]
     Dosage: AS NECESSARY
     Route: 065
  5. METHOTREXATE [Concomitant]
     Route: 065
  6. FOLIC ACID [Concomitant]
     Route: 065

REACTIONS (2)
  - Cerebral infarction [Recovered/Resolved]
  - Rheumatoid arthritis [Unknown]
